FAERS Safety Report 4444797-3 (Version None)
Quarter: 2004Q3

REPORT INFORMATION
  Report Type: 
  Country: None (occurrence: None)
  Receive Date: 20040909
  Receipt Date: 20040831
  Transmission Date: 20050211
  Serious: Yes (Death, Hospitalization)
  Sender: FDA-Public Use
  Company Number: US-MERCK-0409USA00130

PATIENT
  Age: 45 Year
  Sex: Female

DRUGS (4)
  1. GLUCOPHAGE [Concomitant]
     Route: 065
  2. TOPROL-XL [Concomitant]
     Route: 065
  3. VIOXX [Suspect]
     Indication: PAIN
     Route: 048
  4. VIOXX [Suspect]
     Route: 048

REACTIONS (3)
  - CHEST PAIN [None]
  - DEATH [None]
  - VENTRICULAR EXTRASYSTOLES [None]
